FAERS Safety Report 8809559 (Version 1)
Quarter: 2012Q4

REPORT INFORMATION
  Report Type: 
  Country: US (occurrence: US)
  Receive Date: 20120926
  Receipt Date: 20120926
  Transmission Date: 20130627
  Serious: No
  Sender: FDA-Public Use
  Company Number: US-ASTRAZENECA-2012SE71700

PATIENT
  Age: 89 Year
  Sex: Female
  Weight: 60.3 kg

DRUGS (3)
  1. PULMICORT FLEXHALER [Suspect]
     Indication: LUNG DISORDER
     Dosage: ONE PUFF, TWO TIMES A DAY
     Route: 055
  2. OXYGEN [Concomitant]
  3. NEBULIZER [Concomitant]

REACTIONS (4)
  - Hypertension [Unknown]
  - Aphonia [Unknown]
  - Drug dose omission [Unknown]
  - Off label use [Unknown]
